FAERS Safety Report 24874103 (Version 1)
Quarter: 2025Q1

REPORT INFORMATION
  Report Type: Spontaneous
  Country: NL (occurrence: NL)
  Receive Date: 20250122
  Receipt Date: 20250122
  Transmission Date: 20250408
  Serious: Yes (Life-Threatening, Hospitalization)
  Sender: FRESENIUS KABI
  Company Number: None

PATIENT
  Age: 50 Year
  Sex: Female
  Weight: 58.3 kg

DRUGS (12)
  1. ROCURONIUM [Suspect]
     Active Substance: ROCURONIUM BROMIDE
     Indication: Preoperative care
     Dates: start: 20241227
  2. CEFAZOLIN SODIUM [Suspect]
     Active Substance: CEFAZOLIN SODIUM
     Indication: Antibiotic prophylaxis
     Dates: start: 20241227
  3. ESKETAMINE [Suspect]
     Active Substance: ESKETAMINE
     Indication: Preoperative care
     Dates: start: 20241227
  4. REMIFENTANIL [Suspect]
     Active Substance: REMIFENTANIL
     Indication: Preoperative care
     Dates: start: 20241227, end: 20241227
  5. SUMATRIPTAN dispersible tablet 100MG / Brand name not specified [Concomitant]
     Indication: Product used for unknown indication
     Route: 048
  6. FLUTICASON Nasal drops 1MG/ML / FLIXONASE Nasal drops 1MG/ML PATROON 0 [Concomitant]
     Indication: Product used for unknown indication
     Route: 045
  7. SULFAMETHOXAZOLE\TRIMETHOPRIM [Concomitant]
     Active Substance: SULFAMETHOXAZOLE\TRIMETHOPRIM
     Indication: Product used for unknown indication
     Route: 048
  8. DEXAMETHASON solution for infusion 4MG/ML (BASE) / Brand name not spec [Concomitant]
     Indication: Product used for unknown indication
  9. MAGNESIUM [Concomitant]
     Active Substance: MAGNESIUM
     Indication: Product used for unknown indication
  10. ASCORBINE ACID / Brand name not specified [Concomitant]
     Indication: Product used for unknown indication
  11. PROPOFOL INJ.EMULSIE 10MG/ML / Brand name not specified [Concomitant]
     Indication: Product used for unknown indication
  12. LIDOCAINE solution for infusion 10MG/ML (HCL) / Brand name not specifi [Concomitant]
     Indication: Product used for unknown indication

REACTIONS (1)
  - Anaphylactic shock [Recovering/Resolving]
